FAERS Safety Report 7233427-3 (Version None)
Quarter: 2011Q1

REPORT INFORMATION
  Report Type: 
  Country: None (occurrence: None)
  Receive Date: 20110110
  Receipt Date: 20101224
  Transmission Date: 20110831
  Serious: Yes (Hospitalization)
  Sender: FDA-Public Use
  Company Number: AUR-APL-2010-03244

PATIENT
  Sex: Male

DRUGS (9)
  1. ZOLOFT [Concomitant]
  2. NATECAL (CALCIUM CARBONATE-CHOLECALCIFEROL [Concomitant]
  3. ALLOPURINOL [Concomitant]
  4. EUTIROX (LEVOTHYROXINE) [Concomitant]
  5. SIMVASTATIN [Suspect]
     Indication: HYPERCHOLESTEROLAEMIA
     Dosage: 20MG-QD-ORAL
     Route: 048
     Dates: start: 20100501, end: 20100617
  6. PERINDOPRIL ERBUMINE [Concomitant]
  7. LASIX [Concomitant]
  8. ESOPRAL (ESOMEPRAZOLE) [Concomitant]
  9. CARVEDILOL [Concomitant]

REACTIONS (2)
  - ARTHRALGIA [None]
  - ARTHROPATHY [None]
